FAERS Safety Report 17611933 (Version 1)
Quarter: 2020Q2

REPORT INFORMATION
  Report Type: Report from Study
  Country: BR (occurrence: BR)
  Receive Date: 20200401
  Receipt Date: 20200401
  Transmission Date: 20200713
  Serious: Yes (Hospitalization, Other)
  Sender: FDA-Public Use
  Company Number: BR-UCBSA-2020013214

PATIENT
  Age: 63 Year
  Sex: Female
  Weight: 76 kg

DRUGS (7)
  1. ACETATO DE HIDROCORTISONA [Concomitant]
     Indication: HYPERSENSITIVITY
     Dosage: UNK
     Route: 061
  2. DAFLON [DIOSMIN] [Concomitant]
     Active Substance: DIOSMIN
     Indication: CARDIOVASCULAR DISORDER
     Dosage: 1 TABLET IN THE MORNING
     Route: 048
  3. PERIDAL [DOMPERIDONE] [Concomitant]
     Indication: DENGUE FEVER
     Dosage: 1 TABLET PER DAY
     Route: 048
  4. LEFLUNOMIDA [Concomitant]
     Active Substance: LEFLUNOMIDE
     Indication: RHEUMATOID ARTHRITIS
     Dosage: 20 MILLIGRAM, ONCE DAILY (QD)
     Route: 048
  5. PERIDAL [DOMPERIDONE] [Concomitant]
     Indication: GASTROOESOPHAGEAL REFLUX DISEASE
  6. CERTOLIZUMAB PEGOL RA [Suspect]
     Active Substance: CERTOLIZUMAB PEGOL
     Indication: RHEUMATOID ARTHRITIS
     Dosage: 400 MILLIGRAM, EV 4 WEEKS
     Route: 058
     Dates: end: 20190515
  7. CERTOLIZUMAB PEGOL RA [Suspect]
     Active Substance: CERTOLIZUMAB PEGOL
     Dosage: 400 MILLIGRAM, EV 4 WEEKS
     Route: 058
     Dates: start: 201906

REACTIONS (7)
  - Dengue fever [Recovered/Resolved]
  - Pneumonia [Recovered/Resolved]
  - Productive cough [Not Recovered/Not Resolved]
  - Dry eye [Not Recovered/Not Resolved]
  - Gastrooesophageal reflux disease [Not Recovered/Not Resolved]
  - Sinusitis [Not Recovered/Not Resolved]
  - Limb injury [Not Recovered/Not Resolved]

NARRATIVE: CASE EVENT DATE: 201901
